FAERS Safety Report 11857058 (Version 2)
Quarter: 2016Q2

REPORT INFORMATION
  Report Type: Spontaneous
  Country: DK (occurrence: DK)
  Receive Date: 20151221
  Receipt Date: 20160530
  Transmission Date: 20160815
  Serious: Yes (Other)
  Sender: FDA-Public Use
  Company Number: DK-JNJFOC-20151214129

PATIENT
  Age: 63 Year
  Sex: Male

DRUGS (5)
  1. REMICADE [Suspect]
     Active Substance: INFLIXIMAB
     Indication: PSORIATIC ARTHROPATHY
     Dosage: 500/540 MG
     Route: 042
     Dates: start: 20131129, end: 20140103
  2. SIMPONI [Suspect]
     Active Substance: GOLIMUMAB
     Indication: PSORIATIC ARTHROPATHY
     Dosage: 50 (UNSPECIFIED UNIT)
     Route: 058
     Dates: start: 20140220, end: 20140411
  3. ENBREL [Suspect]
     Active Substance: ETANERCEPT
     Indication: PSORIATIC ARTHROPATHY
     Route: 065
     Dates: start: 20140411, end: 20150223
  4. HUMIRA [Concomitant]
     Active Substance: ADALIMUMAB
     Indication: PSORIATIC ARTHROPATHY
     Route: 065
     Dates: start: 20150216, end: 20150301
  5. SIMPONI [Suspect]
     Active Substance: GOLIMUMAB
     Indication: PSORIATIC ARTHROPATHY
     Dosage: 50 UNSPECIFIED UNIT
     Route: 058
     Dates: start: 20150216, end: 20150216

REACTIONS (4)
  - Urinary cystectomy [Recovered/Resolved]
  - Bladder transitional cell carcinoma stage II [Recovered/Resolved with Sequelae]
  - Neobladder surgery [Not Recovered/Not Resolved]
  - Haematuria [Unknown]

NARRATIVE: CASE EVENT DATE: 201501
